FAERS Safety Report 21418344 (Version 2)
Quarter: 2022Q4

REPORT INFORMATION
  Report Type: Spontaneous
  Country: DE (occurrence: DE)
  Receive Date: 20221006
  Receipt Date: 20221013
  Transmission Date: 20230112
  Serious: Yes (Hospitalization, Other)
  Sender: FDA-Public Use
  Company Number: DE-BIOVITRUM-2022DE11327

PATIENT
  Age: 6 Year
  Sex: Female

DRUGS (3)
  1. KINERET [Suspect]
     Active Substance: ANAKINRA
     Indication: Still^s disease
  2. PREDNISOLONE [Concomitant]
     Active Substance: PREDNISOLONE
     Dosage: 2MG/KGBW
  3. CYCLOSPORINE [Concomitant]
     Active Substance: CYCLOSPORINE
     Dosage: DOSE ADAPTED ACCORDING TO BLOOD LEVELS

REACTIONS (4)
  - Posterior reversible encephalopathy syndrome [Unknown]
  - Seizure [Unknown]
  - Vascular stent stenosis [Unknown]
  - Haemophagocytic lymphohistiocytosis [Unknown]
